APPROVED DRUG PRODUCT: DEFLAZACORT
Active Ingredient: DEFLAZACORT
Strength: 30MG
Dosage Form/Route: TABLET;ORAL
Application: A217741 | Product #003 | TE Code: AB
Applicant: SUN PHARMACEUTICAL INDUSTRIES LTD
Approved: Mar 18, 2025 | RLD: No | RS: No | Type: RX